FAERS Safety Report 24734865 (Version 1)
Quarter: 2024Q4

REPORT INFORMATION
  Report Type: Spontaneous
  Country: FR (occurrence: FR)
  Receive Date: 20241215
  Receipt Date: 20241215
  Transmission Date: 20250115
  Serious: Yes (Hospitalization, Other)
  Sender: AUROBINDO
  Company Number: FR-EMA-20170627-neetievhp-133148763

PATIENT
  Age: 59 Year
  Sex: Male

DRUGS (6)
  1. MYCOPHENOLATE MOFETIL [Suspect]
     Active Substance: MYCOPHENOLATE MOFETIL
     Indication: Immunosuppressant drug therapy
     Dosage: 500 MG, TWO TIMES A DAY
     Route: 065
  2. MYCOPHENOLATE MOFETIL [Suspect]
     Active Substance: MYCOPHENOLATE MOFETIL
     Indication: Congenital cystic kidney disease
  3. PREDNISONE [Suspect]
     Active Substance: PREDNISONE
     Indication: Immunosuppressant drug therapy
     Dosage: 7.5 MG, DAILY
     Route: 065
     Dates: start: 200102
  4. PREDNISONE [Suspect]
     Active Substance: PREDNISONE
     Indication: Congenital cystic kidney disease
     Dosage: 20 MILLIGRAM, ONCE A DAY
     Route: 065
     Dates: start: 200102
  5. TACROLIMUS [Suspect]
     Active Substance: TACROLIMUS
     Indication: Congenital cystic kidney disease
     Dosage: 15 MG, TWO TIMES A DAY
     Route: 065
  6. TACROLIMUS [Suspect]
     Active Substance: TACROLIMUS
     Indication: Immunosuppressant drug therapy

REACTIONS (5)
  - Fungal skin infection [Recovered/Resolved]
  - Skin lesion [Recovered/Resolved]
  - Infection [Recovered/Resolved]
  - Fungal infection [Recovered/Resolved]
  - Skin ulcer [Recovered/Resolved]

NARRATIVE: CASE EVENT DATE: 20110701
